FAERS Safety Report 8381159-0 (Version None)
Quarter: 2012Q2

REPORT INFORMATION
  Report Type: 
  Country: None (occurrence: None)
  Receive Date: 20120523
  Receipt Date: 20120518
  Transmission Date: 20120825
  Serious: Yes (Hospitalization)
  Sender: FDA-Public Use
  Company Number: PHHY2012JP043877

PATIENT
  Age: 54 Year
  Sex: Male

DRUGS (9)
  1. NORVASC [Concomitant]
     Dosage: 5 MG, UNK
     Route: 048
  2. PREDNISOLONE [Concomitant]
     Indication: RENAL TRANSPLANT
     Dosage: 5 MG, UNK
     Route: 048
  3. CANDESARTAN CILEXETIL [Concomitant]
     Dosage: 8 MG, UNK
     Route: 048
  4. SIMULECT [Suspect]
     Indication: RENAL TRANSPLANT
  5. LIPITOR [Concomitant]
     Dosage: 10 MG, UNK
     Route: 048
  6. NEORAL [Suspect]
     Indication: RENAL TRANSPLANT
     Dosage: 110 MG, DAILY
     Route: 048
  7. CELLCEPT [Concomitant]
     Indication: RENAL TRANSPLANT
     Dosage: 1 G, UNK
     Route: 048
  8. ROXATIDINE ACETATE HCL [Concomitant]
     Dosage: 75 MG, UNK
     Route: 048
  9. ALLOPURINOL [Concomitant]
     Dosage: 100 MG, UNK
     Route: 048

REACTIONS (2)
  - RETROPERITONEAL NEOPLASM [None]
  - DIABETES MELLITUS [None]
